FAERS Safety Report 7471136-6 (Version None)
Quarter: 2011Q2

REPORT INFORMATION
  Report Type: 
  Country: None (occurrence: None)
  Receive Date: 20110510
  Receipt Date: 20110506
  Transmission Date: 20111010
  Serious: Yes (Other)
  Sender: FDA-Public Use
  Company Number: NL-PFIZER INC-2011065116

PATIENT
  Age: 53 Year
  Sex: Female

DRUGS (3)
  1. VARENICLINE TARTRATE [Suspect]
     Dosage: UNK
     Dates: start: 20110126, end: 20110101
  2. PAROXETINE [Concomitant]
     Indication: MENTAL DISORDER
     Dosage: 20 UNK, UNK
     Route: 048
  3. CLONIDINE [Concomitant]
     Indication: MENOPAUSE
     Dosage: 0.025 UNK, UNK
     Route: 048

REACTIONS (1)
  - AGORAPHOBIA [None]
